FAERS Safety Report 12311540 (Version 1)
Quarter: 2016Q2

REPORT INFORMATION
  Report Type: Spontaneous
  Country: IT (occurrence: IT)
  Receive Date: 20160427
  Receipt Date: 20160427
  Transmission Date: 20160815
  Serious: Yes (Other)
  Sender: FDA-Public Use
  Company Number: IT-WARNER CHILCOTT, LLC-1051110

PATIENT
  Sex: Female

DRUGS (4)
  1. ACTONEL [Suspect]
     Active Substance: RISEDRONATE SODIUM
     Indication: SENILE OSTEOPOROSIS
     Route: 048
     Dates: start: 20040101, end: 20151008
  2. PROLIA [Suspect]
     Active Substance: DENOSUMAB
     Route: 058
     Dates: start: 20151015, end: 20151015
  3. DIBASE [Concomitant]
     Active Substance: CHOLECALCIFEROL
  4. CACIT [Concomitant]
     Active Substance: CALCIUM\VITAMIN D

REACTIONS (1)
  - Atypical femur fracture [Recovering/Resolving]
